FAERS Safety Report 7413327-6 (Version None)
Quarter: 2011Q2

REPORT INFORMATION
  Report Type: 
  Country: None (occurrence: None)
  Receive Date: 20110413
  Receipt Date: 20101028
  Transmission Date: 20111010
  Serious: No
  Sender: FDA-Public Use
  Company Number: US-ASTRAZENECA-2010SE51869

PATIENT
  Sex: Female

DRUGS (7)
  1. ZESTORETIC [Suspect]
     Dosage: 10+12.5 MG/TABLET
     Route: 048
  2. TOPROL-XL [Suspect]
     Route: 048
  3. NIFEDIPINE [Suspect]
  4. TOPROL-XL [Suspect]
     Route: 048
  5. TENORMIN [Suspect]
     Route: 065
  6. COREG CR [Suspect]
  7. METOPROLOL TARTRATE [Suspect]
     Route: 065

REACTIONS (4)
  - DRUG DOSE OMISSION [None]
  - DRUG INEFFECTIVE [None]
  - MALAISE [None]
  - ACTIVITIES OF DAILY LIVING IMPAIRED [None]
